FAERS Safety Report 16540320 (Version 1)
Quarter: 2019Q3

REPORT INFORMATION
  Report Type: Spontaneous
  Country: US (occurrence: US)
  Receive Date: 20190708
  Receipt Date: 20190708
  Transmission Date: 20191004
  Serious: Yes (Other)
  Sender: FDA-Public Use
  Company Number: US-ACS-001449

PATIENT
  Age: 59 Year
  Sex: Female

DRUGS (1)
  1. CEFEPIME HYDROCLORIDE [Suspect]
     Active Substance: CEFEPIME HYDROCHLORIDE
     Route: 065

REACTIONS (1)
  - Hypersensitivity [Unknown]
